FAERS Safety Report 7141722-1 (Version None)
Quarter: 2010Q4

REPORT INFORMATION
  Report Type: 
  Country: None (occurrence: None)
  Receive Date: 20101207
  Receipt Date: 20101127
  Transmission Date: 20110411
  Serious: Yes (Hospitalization, Other)
  Sender: FDA-Public Use
  Company Number: PHHY2010RU73307

PATIENT
  Sex: Female

DRUGS (12)
  1. ELIDEL [Suspect]
     Indication: DERMATITIS ATOPIC
     Route: 061
  2. CEFABOL [Concomitant]
     Dosage: UNK
     Route: 042
     Dates: start: 20100318, end: 20100326
  3. PREDNISONE [Concomitant]
     Dosage: UNK
     Route: 042
     Dates: start: 20100318, end: 20100326
  4. TAVEGIL [Concomitant]
     Dosage: UNK
     Route: 042
     Dates: start: 20100318, end: 20100326
  5. PAPAVERINE [Concomitant]
     Dosage: UNK
     Dates: start: 20100318, end: 20100326
  6. EUPHYLLINE [Concomitant]
     Dosage: UNK
     Dates: start: 20100318, end: 20100326
  7. AUGMENTIN [Concomitant]
     Dosage: UNK
     Dates: start: 20100929, end: 20101018
  8. BIFIDUMBACTERIN [Concomitant]
     Dosage: UNK
     Dates: start: 20100929, end: 20101018
  9. MACROPEN [Concomitant]
     Dosage: UNK
     Dates: start: 20100929
  10. FURAMAGS [Concomitant]
     Dosage: UNK
     Dates: start: 20100929
  11. EUBICOR [Concomitant]
     Dosage: UNK
     Dates: start: 20100929
  12. CANEPHRONE [Concomitant]
     Dosage: UNK
     Dates: start: 20100929

REACTIONS (3)
  - APPLICATION SITE OEDEMA [None]
  - DERMATITIS [None]
  - PYELONEPHRITIS ACUTE [None]
